FAERS Safety Report 4646040-9 (Version None)
Quarter: 2005Q2

REPORT INFORMATION
  Report Type: 
  Country: None (occurrence: None)
  Receive Date: 20050425
  Receipt Date: 20050411
  Transmission Date: 20051028
  Serious: Yes (Other)
  Sender: FDA-Public Use
  Company Number: 2005058917

PATIENT
  Sex: Female

DRUGS (1)
  1. BEXTRA [Suspect]
     Indication: ILL-DEFINED DISORDER
     Dosage: (40 MG), ORAL
     Route: 048

REACTIONS (4)
  - APHTHOUS STOMATITIS [None]
  - MASS [None]
  - PRURITUS [None]
  - SKIN DISCOLOURATION [None]
